FAERS Safety Report 13573201 (Version 5)
Quarter: 2017Q2

REPORT INFORMATION
  Report Type: Report from Study
  Country: FR (occurrence: FR)
  Receive Date: 20170523
  Receipt Date: 20170622
  Transmission Date: 20170830
  Serious: Yes (Hospitalization)
  Sender: FDA-Public Use
  Company Number: FR-JNJFOC-20170516544

PATIENT
  Age: 77 Year
  Sex: Male
  Weight: 90 kg

DRUGS (8)
  1. PREDNISOLONE METASULFOBENZOATE SODIUM [Suspect]
     Active Substance: PREDNISOLONE SODIUM METAZOATE
     Indication: PROSTATE CANCER METASTATIC
     Dosage: CUMULATIVE DOSE WAS 3650 MG SINCE 1ST ADMINISTRATION
     Route: 048
     Dates: start: 20160502, end: 20170503
  2. DECAPEPTYL [Suspect]
     Active Substance: TRIPTORELIN
     Indication: PROSTATE CANCER METASTATIC
     Dosage: CUMULATIVE DOSE WAS 48 MG SINCE 1ST ADMINISTRATION
     Route: 058
     Dates: start: 20160202, end: 201705
  3. DIFFU K [Concomitant]
     Active Substance: POTASSIUM CHLORIDE
     Indication: HYPOKALAEMIA
     Route: 048
     Dates: start: 20160113
  4. ZYTIGA [Suspect]
     Active Substance: ABIRATERONE ACETATE
     Indication: PROSTATE CANCER METASTATIC
     Dosage: CUMULATIVE DOSE WAS 365 G SINCE 1ST ADMINISTRATION
     Route: 048
     Dates: start: 20160502, end: 20170503
  5. ATORVASTATIN [Concomitant]
     Active Substance: ATORVASTATIN
     Indication: DYSLIPIDAEMIA
     Route: 048
  6. KARDEGIC [Concomitant]
     Active Substance: ASPIRIN LYSINE
     Indication: CARDIAC DISORDER
     Route: 048
  7. INDAPAMIDE. [Concomitant]
     Active Substance: INDAPAMIDE
     Indication: HYPERTENSION
     Route: 048
  8. MOXONIDINE [Concomitant]
     Active Substance: MOXONIDINE
     Indication: HYPERTENSION
     Route: 048

REACTIONS (1)
  - Metabolic disorder [Recovered/Resolved]

NARRATIVE: CASE EVENT DATE: 20161024
